FAERS Safety Report 16618310 (Version 1)
Quarter: 2019Q3

REPORT INFORMATION
  Report Type: Spontaneous
  Country: US (occurrence: US)
  Receive Date: 20190723
  Receipt Date: 20190723
  Transmission Date: 20191004
  Serious: No
  Sender: FDA-Public Use
  Company Number: US-IMPAX LABORATORIES, LLC-2018-IPXL-03594

PATIENT
  Sex: Male
  Weight: 123 kg

DRUGS (2)
  1. ADRENACLICK [Suspect]
     Active Substance: EPINEPHRINE
     Indication: ANAPHYLACTIC REACTION
     Dosage: 0.3 MILLIGRAM, AS NEEDED
     Route: 050
     Dates: start: 2018, end: 2018
  2. ADRENACLICK [Suspect]
     Active Substance: EPINEPHRINE
     Dosage: 0.3 MILLIGRAM, AS NEEDED
     Route: 050
     Dates: start: 2018, end: 2018

REACTIONS (1)
  - Device issue [Unknown]
